FAERS Safety Report 5179175-5 (Version None)
Quarter: 2006Q4

REPORT INFORMATION
  Report Type: 
  Country: None (occurrence: None)
  Receive Date: 20061211
  Receipt Date: 20061109
  Transmission Date: 20070319
  Serious: Yes (Disabling)
  Sender: FDA-Public Use
  Company Number: HQWYE234113NOV06

PATIENT
  Age: 47 Year
  Sex: Female

DRUGS (4)
  1. EFFEXOR XR [Suspect]
     Indication: DEPRESSION
     Dosage: 225 MG 1X PER 1 DAY, ORAL
     Route: 048
     Dates: start: 20060101
  2. ZOLOFT [Concomitant]
  3. ADDERALL 10 [Concomitant]
  4. TOPAMAX [Concomitant]

REACTIONS (4)
  - APATHY [None]
  - CRYING [None]
  - DRUG EFFECT DECREASED [None]
  - SOCIAL AVOIDANT BEHAVIOUR [None]
